FAERS Safety Report 11075951 (Version 2)
Quarter: 2015Q3

REPORT INFORMATION
  Report Type: Spontaneous
  Country: MX (occurrence: MX)
  Receive Date: 20150429
  Receipt Date: 20150922
  Transmission Date: 20151125
  Serious: Yes (Other)
  Sender: FDA-Public Use
  Company Number: MX-GLAXOSMITHKLINE-MX2015GSK033286

PATIENT
  Sex: Female
  Weight: 61 kg

DRUGS (1)
  1. NIQUITIN [Suspect]
     Active Substance: NICOTINE
     Indication: SMOKING CESSATION THERAPY
     Dosage: 21 MG, UNK

REACTIONS (4)
  - Incorrect dose administered [Unknown]
  - Expired product administered [Unknown]
  - Incorrect drug administration duration [Not Recovered/Not Resolved]
  - Wrong technique in product usage process [Unknown]
